FAERS Safety Report 21087355 (Version 1)
Quarter: 2022Q3

REPORT INFORMATION
  Report Type: Spontaneous
  Country: US (occurrence: None)
  Receive Date: 20220714
  Receipt Date: 20220714
  Transmission Date: 20221026
  Serious: Yes (unspecified)
  Sender: FDA-Public Use
  Company Number: None

PATIENT
  Age: 83 Year
  Sex: Male
  Weight: 94 kg

DRUGS (1)
  1. GEMFIBROZIL [Suspect]
     Active Substance: GEMFIBROZIL
     Indication: Hyperlipidaemia
     Dosage: FREQUENCY : TWICE A DAY;?
     Route: 048
     Dates: start: 20220212, end: 20220216

REACTIONS (3)
  - Myalgia [None]
  - Anaphylactic reaction [None]
  - Rash [None]

NARRATIVE: CASE EVENT DATE: 20220216
